FAERS Safety Report 22521877 (Version 1)
Quarter: 2023Q2

REPORT INFORMATION
  Report Type: Spontaneous
  Country: US (occurrence: US)
  Receive Date: 20230605
  Receipt Date: 20230605
  Transmission Date: 20230721
  Serious: Yes (Other)
  Sender: FDA-Public Use
  Company Number: US-002147023-NVSC2023US126370

PATIENT
  Age: 66 Year
  Sex: Male

DRUGS (1)
  1. PHENYLEPHRINE [Suspect]
     Active Substance: PHENYLEPHRINE HYDROCHLORIDE
     Indication: Priapism
     Dosage: 500 UG
     Route: 017

REACTIONS (3)
  - Hypertensive urgency [Unknown]
  - Product use in unapproved indication [Unknown]
  - Product use issue [Unknown]
